FAERS Safety Report 6720905-6 (Version None)
Quarter: 2010Q2

REPORT INFORMATION
  Report Type: 
  Country: None (occurrence: None)
  Receive Date: 20100512
  Receipt Date: 20100502
  Transmission Date: 20101027
  Serious: Yes (Other)
  Sender: FDA-Public Use
  Company Number: US-JNJFOC-20100501942

PATIENT
  Sex: Male

DRUGS (5)
  1. CHILDREN'S TYLENOL LIQUID BUBBLEGUM [Suspect]
     Route: 048
  2. CHILDREN'S TYLENOL LIQUID BUBBLEGUM [Suspect]
     Indication: PYREXIA
     Route: 048
  3. CHILDREN'S MOTRIN [Suspect]
     Route: 048
  4. CHILDREN'S MOTRIN [Suspect]
     Indication: PYREXIA
     Route: 048
  5. CHILDREN'S ZYRTEC ALLERGY [Suspect]
     Indication: DRUG USE FOR UNKNOWN INDICATION

REACTIONS (3)
  - AGITATION [None]
  - CONVULSION [None]
  - PRODUCT QUALITY ISSUE [None]
